FAERS Safety Report 10013022 (Version 2)
Quarter: 2014Q2

REPORT INFORMATION
  Report Type: Spontaneous
  Country: US (occurrence: US)
  Receive Date: 20140314
  Receipt Date: 20140416
  Transmission Date: 20141212
  Serious: Yes (Hospitalization, Other)
  Sender: FDA-Public Use
  Company Number: US-FRI-1000060569

PATIENT
  Age: 45 Year
  Sex: Female

DRUGS (3)
  1. FETZIMA [Suspect]
     Indication: DEPRESSION
     Dosage: 20 MG
     Route: 048
     Dates: start: 20140225, end: 20140226
  2. FETZIMA [Suspect]
     Dosage: 40 MG
     Route: 048
     Dates: start: 20140227, end: 20140301
  3. HYDROCHLOROTHIAZIDE [Concomitant]
     Dosage: 25 MG

REACTIONS (2)
  - Hypothermia [Recovered/Resolved]
  - Restlessness [Recovered/Resolved]
